FAERS Safety Report 13125357 (Version 1)
Quarter: 2017Q1

REPORT INFORMATION
  Report Type: Spontaneous
  Country: US (occurrence: US)
  Receive Date: 20170118
  Receipt Date: 20170118
  Transmission Date: 20170428
  Serious: No
  Sender: FDA-Public Use
  Company Number: US-009507513-1701USA005497

PATIENT
  Age: 19 Year
  Sex: Female
  Weight: 86.17 kg

DRUGS (1)
  1. NEXPLANON [Suspect]
     Active Substance: ETONOGESTREL
     Indication: CONTRACEPTION
     Dosage: 3 YEAR IMPLANT / ON LEFT ARM
     Route: 059

REACTIONS (4)
  - Complication associated with device [Not Recovered/Not Resolved]
  - Implant site mass [Unknown]
  - Implant site pruritus [Unknown]
  - Implant site erythema [Unknown]

NARRATIVE: CASE EVENT DATE: 2016
